FAERS Safety Report 6716780-6 (Version None)
Quarter: 2010Q2

REPORT INFORMATION
  Report Type: 
  Country: None (occurrence: None)
  Receive Date: 20100510
  Receipt Date: 20100503
  Transmission Date: 20101027
  Serious: Yes (Other)
  Sender: FDA-Public Use
  Company Number: US-TEVA-233488USA

PATIENT
  Sex: Female

DRUGS (7)
  1. MEDROXYPROGESTERONE ACETATE [Suspect]
  2. MEDROXYPROGESTERONE ACETATE [Suspect]
  3. ESTROGENS CONJUGATED [Suspect]
  4. ESTRATEST H.S. [Suspect]
  5. ESTROGEN NOS [Suspect]
  6. PROGESTERONE [Suspect]
  7. FEMOVIRIN [Suspect]

REACTIONS (1)
  - OVARIAN CANCER [None]
